FAERS Safety Report 21923250 (Version 4)
Quarter: 2024Q2

REPORT INFORMATION
  Report Type: Report from Study
  Country: JP (occurrence: JP)
  Receive Date: 20230129
  Receipt Date: 20240506
  Transmission Date: 20240716
  Serious: Yes (Death, Hospitalization, Other)
  Sender: FDA-Public Use
  Company Number: JP-TAKEDA-2023TJP000987

PATIENT
  Age: 73 Year
  Sex: Male
  Weight: 54 kg

DRUGS (8)
  1. LEUPROLIDE ACETATE [Suspect]
     Active Substance: ISOPROPYL ALCOHOL\LEUPROLIDE ACETATE
     Indication: Bulbospinal muscular atrophy congenital
     Dosage: 11.25 MILLIGRAM, Q3MONTHS
     Route: 058
     Dates: start: 20171120, end: 20210830
  2. KEYTRUDA [Concomitant]
     Active Substance: PEMBROLIZUMAB
     Indication: Lung neoplasm malignant
     Dosage: 400 MILLIGRAM
     Route: 065
     Dates: start: 20210412, end: 20210412
  3. KEYTRUDA [Concomitant]
     Active Substance: PEMBROLIZUMAB
     Indication: Lung neoplasm malignant
     Dosage: 400 MILLIGRAM
     Route: 065
     Dates: start: 20210816, end: 20210816
  4. KEYTRUDA [Concomitant]
     Active Substance: PEMBROLIZUMAB
     Indication: Lung neoplasm malignant
     Dosage: 400 MILLIGRAM
     Route: 065
     Dates: start: 20210524, end: 20210524
  5. KEYTRUDA [Concomitant]
     Active Substance: PEMBROLIZUMAB
     Indication: Lung neoplasm malignant
     Dosage: 400 MILLIGRAM
     Route: 065
     Dates: start: 20210705, end: 20210705
  6. KEYTRUDA [Concomitant]
     Active Substance: PEMBROLIZUMAB
     Indication: Lung neoplasm malignant
     Dosage: 400 MILLIGRAM
     Route: 065
     Dates: start: 20210118, end: 20210118
  7. KEYTRUDA [Concomitant]
     Active Substance: PEMBROLIZUMAB
     Indication: Lung neoplasm malignant
     Dosage: 400 MILLIGRAM
     Route: 065
     Dates: start: 20210301, end: 20210301
  8. METHYLCOBALAMIN [Concomitant]
     Active Substance: METHYLCOBALAMIN
     Indication: Bulbospinal muscular atrophy congenital
     Dosage: 1500 MICROGRAM
     Route: 065

REACTIONS (2)
  - Lung neoplasm malignant [Fatal]
  - Pneumonia [Fatal]

NARRATIVE: CASE EVENT DATE: 20211011
